FAERS Safety Report 20921081 (Version 1)
Quarter: 2022Q2

REPORT INFORMATION
  Report Type: Spontaneous
  Country: CA (occurrence: CA)
  Receive Date: 20220606
  Receipt Date: 20220606
  Transmission Date: 20220721
  Serious: Yes (Other)
  Sender: FDA-Public Use
  Company Number: CA-GILEAD-2022-0583259

PATIENT
  Age: 39 Year
  Sex: Male

DRUGS (1)
  1. DESCOVY [Suspect]
     Active Substance: EMTRICITABINE\TENOFOVIR ALAFENAMIDE FUMARATE
     Indication: Prophylaxis against HIV infection
     Dosage: 1 DOSAGE FORM
     Route: 048
     Dates: start: 20220427

REACTIONS (6)
  - Paraesthesia [Recovered/Resolved]
  - Trigeminal neuralgia [Recovered/Resolved]
  - Pain in jaw [Recovered/Resolved]
  - Rhinorrhoea [Recovered/Resolved]
  - Lacrimal disorder [Recovered/Resolved]
  - Headache [Recovered/Resolved]

NARRATIVE: CASE EVENT DATE: 20220427
